FAERS Safety Report 9213167 (Version 1)
Quarter: 2013Q1

REPORT INFORMATION
  Report Type: Spontaneous
  Country: US (occurrence: None)
  Receive Date: 20120820
  Receipt Date: 20120820
  Transmission Date: 20140127
  Serious: No
  Sender: FDA-Public Use
  Company Number: 1000036956

PATIENT
  Age: 28 Year
  Sex: Female

DRUGS (11)
  1. VIIBRYD (VILAZODONE)(10 MILLIGRAM, TABLETS) [Suspect]
     Indication: DEPRESSION
     Route: 048
     Dates: start: 20120628, end: 20120704
  2. VIIBRYD (VILAZODONE)(10 MILLIGRAM, TABLETS) [Suspect]
     Indication: ANXIETY
     Route: 048
     Dates: start: 20120628, end: 20120704
  3. VIIBRYD (VILAZODONE) [Suspect]
     Indication: DEPRESSION
     Route: 048
     Dates: start: 20120705, end: 20120706
  4. VIIBRYD (VILAZODONE) [Suspect]
     Indication: ANXIETY
     Route: 048
     Dates: start: 20120705, end: 20120706
  5. VIIBRYD (VILAZODONE) (TABLETS) [Suspect]
     Indication: DEPRESSION
     Route: 048
     Dates: start: 20120709
  6. VIIBRYD (VILAZODONE) (TABLETS) [Suspect]
     Indication: ANXIETY
     Route: 048
     Dates: start: 20120709
  7. ZYRTEC (CETIRIZINE HYDROCHLORIDE)(CETIRIZINE HYDROCHLORIDE) [Concomitant]
  8. PEPPERMINT (PEPPERMINT)(PEPPERMINT) [Concomitant]
  9. COLACE (DOCUSATE SODIUM) (DOCUSATE SODIUM) [Concomitant]
  10. WELLBUTRIN (BUPROPIN HYDROCHLORIDE) (BUPROPIN HYDROCHLORIDE) [Concomitant]
  11. XANAX (ALPRAZOLAM) (ALPRAZOLAM) [Concomitant]

REACTIONS (8)
  - Disorientation [None]
  - Diarrhoea [None]
  - Abdominal pain [None]
  - Skin tightness [None]
  - Nightmare [None]
  - Burning sensation [None]
  - Paraesthesia [None]
  - Muscle twitching [None]
